FAERS Safety Report 4555983-6 (Version None)
Quarter: 2005Q1

REPORT INFORMATION
  Report Type: 
  Country: None (occurrence: None)
  Receive Date: 20050110
  Receipt Date: 20040616
  Transmission Date: 20050727
  Serious: Yes (Hospitalization)
  Sender: FDA-Public Use
  Company Number: KDL029573

PATIENT
  Age: 33 Year
  Sex: Female

DRUGS (9)
  1. ANAKINRA [Suspect]
     Indication: RHEUMATOID ARTHRITIS
     Dosage: 100 MG, DAILY, SC
     Route: 058
     Dates: start: 20010106
  2. METHOTREXATE [Suspect]
     Dosage: 7.5 MG, WEEKLY, PO
     Route: 048
     Dates: start: 19981101
  3. PREDNISONE [Suspect]
     Dosage: 10 MG, DAILY, PO
     Route: 048
     Dates: start: 19980515
  4. FOLIC ACID [Concomitant]
  5. ESTRADIOL [Concomitant]
  6. AMLODIPINE AND BENAZEPRIL HYDROCHLORIDE [Concomitant]
  7. OMEPRAZOLE [Concomitant]
  8. BECLOMETHASONE DIPROPIONATE [Concomitant]
  9. ESOMEPRAZOLE MAGNESIUM [Concomitant]

REACTIONS (1)
  - PNEUMONIA [None]
